FAERS Safety Report 6878004 (Version 5)
Quarter: 2017Q1

REPORT INFORMATION
  Report Type: Spontaneous
  Country: US (occurrence: US)
  Receive Date: 20090112
  Receipt Date: 20170203
  Transmission Date: 20170429
  Serious: Yes (Other)
  Sender: FDA-Public Use
  Company Number: US-JNJFOC-20090101646

PATIENT
  Sex: Male

DRUGS (1)
  1. LEVAQUIN [Suspect]
     Active Substance: LEVOFLOXACIN
     Indication: INFECTION
     Dosage: ONE OR TWO TABLETS EVERY DAY
     Route: 065
     Dates: start: 200810, end: 200810

REACTIONS (2)
  - Product counterfeit [Unknown]
  - Feeling hot [Unknown]
